FAERS Safety Report 15290094 (Version 7)
Quarter: 2022Q1

REPORT INFORMATION
  Report Type: Spontaneous
  Country: CA (occurrence: CA)
  Receive Date: 20180817
  Receipt Date: 20220311
  Transmission Date: 20220424
  Serious: Yes (Death, Other)
  Sender: FDA-Public Use
  Company Number: CA-PFIZER INC-2018329967

PATIENT
  Age: 31 Month

DRUGS (19)
  1. CYTARABINE [Suspect]
     Active Substance: CYTARABINE
     Indication: Acute lymphocytic leukaemia
     Dosage: UNK
     Route: 037
  2. CYTARABINE [Suspect]
     Active Substance: CYTARABINE
     Dosage: UNK
     Route: 065
  3. ETOPOSIDE [Suspect]
     Active Substance: ETOPOSIDE
     Indication: Acute lymphocytic leukaemia
     Dosage: UNK
     Route: 042
  4. HYDROCORTISONE SODIUM SUCCINATE [Suspect]
     Active Substance: HYDROCORTISONE SODIUM SUCCINATE
     Indication: Acute lymphocytic leukaemia
     Dosage: UNK
     Route: 037
  5. METHOTREXATE SODIUM [Suspect]
     Active Substance: METHOTREXATE SODIUM
     Indication: Acute lymphocytic leukaemia
     Dosage: UNK
  6. METHYLPREDNISOLONE SODIUM SUCCINATE [Suspect]
     Active Substance: METHYLPREDNISOLONE SODIUM SUCCINATE
     Indication: Acute lymphocytic leukaemia
     Dosage: UNK
     Route: 042
  7. VINCRISTINE SULFATE [Suspect]
     Active Substance: VINCRISTINE SULFATE
     Indication: Acute lymphocytic leukaemia
     Dosage: UNK
     Route: 042
  8. LEUCOVORIN CALCIUM [Suspect]
     Active Substance: LEUCOVORIN CALCIUM
     Indication: Acute lymphocytic leukaemia
     Dosage: UNK
     Route: 042
  9. ASPARAGINASE [Suspect]
     Active Substance: ASPARAGINASE
     Indication: Acute lymphocytic leukaemia
     Dosage: UNK
     Route: 051
  10. CYCLOSPORINE [Suspect]
     Active Substance: CYCLOSPORINE
     Indication: Acute lymphocytic leukaemia
     Dosage: UNK
  11. CYCLOPHOSPHAMIDE [Suspect]
     Active Substance: CYCLOPHOSPHAMIDE
     Indication: Acute lymphocytic leukaemia
     Dosage: UNK
     Route: 042
  12. DAUNORUBICIN [Suspect]
     Active Substance: DAUNORUBICIN
     Indication: Acute lymphocytic leukaemia
     Dosage: UNK
     Route: 042
  13. DEXAMETHASONE [Suspect]
     Active Substance: DEXAMETHASONE
     Indication: Acute lymphocytic leukaemia
     Dosage: UNK
     Route: 065
  14. FILGRASTIM [Suspect]
     Active Substance: FILGRASTIM
     Indication: Acute lymphocytic leukaemia
     Dosage: UNK
  15. MERCAPTOPURINE [Suspect]
     Active Substance: MERCAPTOPURINE
     Indication: Acute lymphocytic leukaemia
     Dosage: UNK
     Route: 048
  16. MESNA [Suspect]
     Active Substance: MESNA
     Indication: Acute lymphocytic leukaemia
     Dosage: UNK
     Route: 065
  17. PEGASPARGASE [Suspect]
     Active Substance: PEGASPARGASE
     Indication: Acute lymphocytic leukaemia
     Dosage: UNK
     Route: 030
  18. PREDNISONE [Suspect]
     Active Substance: PREDNISONE
     Indication: Acute lymphocytic leukaemia
     Dosage: UNK
     Route: 048
  19. CYCLOPHOSPHAMIDE [Suspect]
     Active Substance: CYCLOPHOSPHAMIDE
     Indication: Acute lymphocytic leukaemia
     Dosage: UNK
     Route: 042

REACTIONS (26)
  - Aspergillus infection [Fatal]
  - Bronchopulmonary aspergillosis [Fatal]
  - Cellulitis [Fatal]
  - Clostridium difficile colitis [Fatal]
  - Mycobacterium chelonae infection [Fatal]
  - Pseudomonal sepsis [Fatal]
  - Cytomegalovirus viraemia [Fatal]
  - Cystitis [Fatal]
  - Bacterial infection [Fatal]
  - Fungal infection [Fatal]
  - Viral infection [Fatal]
  - Cystitis bacterial [Fatal]
  - Enteritis [Fatal]
  - Enterobacter infection [Fatal]
  - Human bocavirus infection [Fatal]
  - Human herpesvirus 6 infection [Fatal]
  - Intracardiac thrombus [Fatal]
  - Lymphoid tissue hypoplasia [Fatal]
  - Norovirus test positive [Fatal]
  - Oral herpes [Fatal]
  - Pneumatosis intestinalis [Fatal]
  - Pneumonia [Fatal]
  - Rhinovirus infection [Fatal]
  - Secondary immunodeficiency [Fatal]
  - Thymus hypoplasia [Fatal]
  - Viraemia [Fatal]
